FAERS Safety Report 4686715-9 (Version None)
Quarter: 2005Q2

REPORT INFORMATION
  Report Type: 
  Country: None (occurrence: None)
  Receive Date: 20050608
  Receipt Date: 20050525
  Transmission Date: 20051028
  Serious: Yes (Hospitalization, Disabling)
  Sender: FDA-Public Use
  Company Number: 2005074495

PATIENT
  Age: 68 Year
  Sex: Female

DRUGS (11)
  1. AROMASIN [Suspect]
     Indication: BREAST CANCER
     Dosage: 25 MG (25 MG, DAILY),ORAL
     Route: 048
     Dates: start: 20050119, end: 20050319
  2. AROMASIN [Suspect]
     Indication: BREAST CANCER
     Dosage: 25 MG (25 MG, DAILY),ORAL
     Route: 048
     Dates: start: 20050401
  3. ANASTROZOLE (ANASTROZOLE) [Suspect]
     Indication: BREAST CANCER
     Dosage: 1 MG (DAILY), ORAL
     Route: 048
     Dates: start: 20020617, end: 20050119
  4. TRASTUZUMAB (TRASTUZUMAB) [Suspect]
     Indication: BREAST CANCER
     Dosage: 120 MG (DAILY), INTRAVENOUS
     Route: 042
     Dates: start: 20050407, end: 20050506
  5. BISPHONAL (DISODIUM INCADRONATE) [Suspect]
     Indication: ILL-DEFINED DISORDER
     Dosage: 10 MG (DAILY),INTRAVENOUS
     Route: 042
     Dates: start: 20020819, end: 20050114
  6. ALENDRONATE SODIUM [Suspect]
     Indication: ILL-DEFINED DISORDER
     Dosage: 5 MG (DAILY), ORAL
     Route: 048
     Dates: start: 20050119, end: 20050319
  7. PREDNISOLONE [Concomitant]
  8. CYCLOPHOSPHAMIDE [Concomitant]
  9. FURTULON (DOXIFLURIDINE) [Concomitant]
  10. AREDIA [Concomitant]
  11. FAMOTIDINE [Concomitant]

REACTIONS (5)
  - COLLAGEN DISORDER [None]
  - INFECTION [None]
  - INTERSTITIAL LUNG DISEASE [None]
  - LYMPHANGIOSIS CARCINOMATOSA [None]
  - METASTASES TO CENTRAL NERVOUS SYSTEM [None]
